FAERS Safety Report 17668176 (Version 5)
Quarter: 2020Q4

REPORT INFORMATION
  Report Type: Spontaneous
  Country: JP (occurrence: JP)
  Receive Date: 20200414
  Receipt Date: 20201013
  Transmission Date: 20210113
  Serious: Yes (Hospitalization, Other)
  Sender: FDA-Public Use
  Company Number: JP-AMGEN-JPNSP2020060202

PATIENT
  Age: 80 Year
  Sex: Male
  Weight: 48.7 kg

DRUGS (19)
  1. PARSABIV [Suspect]
     Active Substance: ETELCALCETIDE HYDROCHLORIDE
     Dosage: 15 MG, Q56H
     Route: 010
     Dates: start: 20190123
  2. NESP [Concomitant]
     Active Substance: DARBEPOETIN ALFA
     Dosage: 5 MUG, QW
     Route: 065
     Dates: start: 20181019, end: 20190222
  3. DARBEPOETIN ALFA [Concomitant]
     Active Substance: DARBEPOETIN ALFA
     Dosage: 30 MICROGRAM, QWK
     Route: 065
     Dates: start: 20190809, end: 20200103
  4. NESP [Concomitant]
     Active Substance: DARBEPOETIN ALFA
     Dosage: 50 MUG, QW
     Route: 065
     Dates: start: 20190405, end: 20190628
  5. NESP [Concomitant]
     Active Substance: DARBEPOETIN ALFA
     Dosage: 30 MUG, QW
     Route: 065
     Dates: start: 20190726, end: 20190802
  6. OXAROL [Concomitant]
     Active Substance: MAXACALCITOL
     Dosage: 5 MICROGRAM, 3 TIMES/WK
     Route: 065
     Dates: start: 20190410, end: 20200203
  7. PARSABIV [Suspect]
     Active Substance: ETELCALCETIDE HYDROCHLORIDE
     Dosage: 10 MG, Q56H
     Route: 010
     Dates: start: 20181112, end: 20190121
  8. NESP [Concomitant]
     Active Substance: DARBEPOETIN ALFA
     Dosage: 15 MUG, QW
     Route: 065
     Dates: start: 20180928, end: 20181012
  9. DARBEPOETIN ALFA [Concomitant]
     Active Substance: DARBEPOETIN ALFA
     Dosage: 40 MICROGRAM, QWK
     Route: 065
     Dates: start: 20200810
  10. OXAROL [Concomitant]
     Active Substance: MAXACALCITOL
     Dosage: 2.5 MICROGRAM, 3 TIMES/WK
     Route: 065
     Dates: start: 20200205, end: 20200918
  11. PARSABIV [Suspect]
     Active Substance: ETELCALCETIDE HYDROCHLORIDE
     Indication: HYPERPARATHYROIDISM SECONDARY
     Dosage: 5 MG, Q56H
     Route: 010
     Dates: start: 20181010, end: 20181109
  12. OXAROL [Concomitant]
     Active Substance: MAXACALCITOL
     Dosage: 2.5 MICROGRAM, 3 TIMES/WK
     Route: 065
     Dates: end: 20190408
  13. NESP [Concomitant]
     Active Substance: DARBEPOETIN ALFA
     Dosage: 15 MUG, QW
     Route: 065
     Dates: start: 20190301, end: 20190308
  14. EPOETIN ALFA BS [Concomitant]
     Active Substance: ERYTHROPOIETIN
     Dosage: 3000 IU, QW
     Route: 065
     Dates: start: 20200817
  15. NESP [Concomitant]
     Active Substance: DARBEPOETIN ALFA
     Dosage: 20 MUG, QW
     Route: 065
     Dates: start: 20180720, end: 20180921
  16. NESP [Concomitant]
     Active Substance: DARBEPOETIN ALFA
     Dosage: 40 MUG, QW
     Route: 065
     Dates: start: 20190329, end: 20190329
  17. RIONA [Concomitant]
     Active Substance: FERRIC CITRATE ANHYDROUS
     Dosage: 750 MG, EVERYDAY
     Route: 065
  18. NESP [Concomitant]
     Active Substance: DARBEPOETIN ALFA
     Dosage: 40 MUG, QW
     Route: 065
     Dates: start: 20190705, end: 20190719
  19. OXAROL [Concomitant]
     Active Substance: MAXACALCITOL
     Dosage: 2.5 MICROGRAM, 2 TIMES/WK
     Route: 065
     Dates: start: 20200921

REACTIONS (6)
  - Dizziness [Unknown]
  - Muscular weakness [Unknown]
  - Subcutaneous haematoma [Recovered/Resolved]
  - Heat illness [Unknown]
  - Altered state of consciousness [Recovered/Resolved]
  - Hypokalaemia [Recovered/Resolved]

NARRATIVE: CASE EVENT DATE: 20190515
